FAERS Safety Report 14578519 (Version 1)
Quarter: 2018Q1

REPORT INFORMATION
  Report Type: Spontaneous
  Country: US (occurrence: US)
  Receive Date: 20180227
  Receipt Date: 20180227
  Transmission Date: 20180509
  Serious: Yes (Other)
  Sender: FDA-Public Use
  Company Number: None

PATIENT
  Age: 11 Year
  Sex: Female
  Weight: 30.6 kg

DRUGS (3)
  1. OSELTAMIVIR PHOSPHATE CAPSULES USP [Suspect]
     Active Substance: OSELTAMIVIR PHOSPHATE
     Indication: INFLUENZA
     Dosage: ?          QUANTITY:2 CAPSULE(S);?
     Route: 048
     Dates: start: 20180212, end: 20180212
  2. CHILDRENS TYLENOL [Concomitant]
     Active Substance: ACETAMINOPHEN
  3. CHILDRENS ADVIL [Concomitant]
     Active Substance: IBUPROFEN

REACTIONS (7)
  - Vomiting projectile [None]
  - Diarrhoea [None]
  - Middle insomnia [None]
  - Loss of consciousness [None]
  - Seizure [None]
  - Heart rate increased [None]
  - Tremor [None]

NARRATIVE: CASE EVENT DATE: 20180212
